FAERS Safety Report 5218064-4 (Version None)
Quarter: 2007Q1

REPORT INFORMATION
  Report Type: 
  Country: None (occurrence: None)
  Receive Date: 20061130
  Receipt Date: 20060905
  Transmission Date: 20070707
  Serious: Yes (Other)
  Sender: FDA-Public Use
  Company Number: US200609001218

PATIENT
  Age: 47 Year
  Sex: Female
  Weight: 77.1 kg

DRUGS (6)
  1. ZYPREXA [Suspect]
     Indication: SCHIZOPHRENIA
     Dates: start: 19990201, end: 19991201
  2. ZYPREXA [Suspect]
     Indication: SCHIZOPHRENIA
     Dates: start: 20010101, end: 20040101
  3. VALIUM   /NET/(DIAZEPAM) [Concomitant]
  4. ATIVAN [Concomitant]
  5. SEROQUEL  /UNK/(QUETIAPINE FUMARATE) [Concomitant]
  6. GEODON [Concomitant]

REACTIONS (13)
  - ABASIA [None]
  - DIABETES MELLITUS [None]
  - DISCOMFORT [None]
  - EYE PAIN [None]
  - FALSE POSITIVE TUBERCULOSIS TEST [None]
  - HYPERGLYCAEMIA [None]
  - HYPOAESTHESIA [None]
  - MUSCLE DISORDER [None]
  - NEUROPATHY [None]
  - POLLAKIURIA [None]
  - SKIN LESION [None]
  - SUBCUTANEOUS ABSCESS [None]
  - WEIGHT INCREASED [None]
